FAERS Safety Report 6137342-8 (Version None)
Quarter: 2009Q1

REPORT INFORMATION
  Report Type: 
  Country: None (occurrence: None)
  Receive Date: 20090330
  Receipt Date: 20090325
  Transmission Date: 20090719
  Serious: No
  Sender: FDA-Public Use
  Company Number: US-B.I. PHARMACEUTICALS,INC./RIDGEFIELD-2007-BP-02111BP

PATIENT
  Age: 73 Year
  Sex: Male

DRUGS (4)
  1. SPIRIVA [Suspect]
     Indication: EMPHYSEMA
     Dosage: 18MCG
     Route: 055
     Dates: start: 20060401
  2. ALBUTEROL [Concomitant]
     Indication: EMPHYSEMA
     Route: 055
  3. QVAR 40 [Concomitant]
     Indication: EMPHYSEMA
     Dosage: 160MCG
     Route: 055
  4. CITRUCEL [Concomitant]
     Indication: DIARRHOEA
     Route: 048

REACTIONS (4)
  - CATARACT [None]
  - OCULAR NEOPLASM [None]
  - RASH MACULAR [None]
  - SKIN EXFOLIATION [None]
